FAERS Safety Report 23197436 (Version 1)
Quarter: 2023Q4

REPORT INFORMATION
  Report Type: Spontaneous
  Country: US (occurrence: None)
  Receive Date: 20231117
  Receipt Date: 20231117
  Transmission Date: 20240110
  Serious: Yes (Other)
  Sender: FDA-Public Use
  Company Number: 2023A260602

PATIENT
  Sex: Female

DRUGS (1)
  1. SYMBICORT [Suspect]
     Active Substance: BUDESONIDE\FORMOTEROL FUMARATE DIHYDRATE
     Indication: Illness
     Dosage: 160 UG,UNKNOWN UNKNOWN
     Route: 055

REACTIONS (6)
  - Vocal cord dysfunction [Recovered/Resolved]
  - Aphonia [Unknown]
  - Bronchospasm [Recovered/Resolved]
  - Sputum retention [Unknown]
  - Device defective [Unknown]
  - Device use issue [Unknown]
